FAERS Safety Report 11402820 (Version 1)
Quarter: 2015Q3

REPORT INFORMATION
  Report Type: Spontaneous
  Country: US (occurrence: None)
  Receive Date: 20150812
  Receipt Date: 20150812
  Transmission Date: 20151125
  Serious: No
  Sender: FDA-Public Use
  Company Number: 1506USA005477

PATIENT
  Age: 50 Year
  Sex: Female

DRUGS (1)
  1. RAGWITEK [Suspect]
     Active Substance: AMBROSIA ARTEMISIIFOLIA POLLEN
     Indication: RHINITIS ALLERGIC
     Dosage: 12 AMB A 1-U
     Route: 048
     Dates: start: 20150604, end: 20150606

REACTIONS (3)
  - Throat tightness [None]
  - Chest discomfort [None]
  - Paraesthesia oral [None]

NARRATIVE: CASE EVENT DATE: 20150604
